FAERS Safety Report 4608904-1 (Version None)
Quarter: 2005Q1

REPORT INFORMATION
  Report Type: 
  Country: None (occurrence: None)
  Receive Date: 20050309
  Receipt Date: 20050225
  Transmission Date: 20050727
  Serious: Yes (Other)
  Sender: FDA-Public Use
  Company Number: 2005039727

PATIENT
  Age: 74 Year
  Sex: Female

DRUGS (2)
  1. CELEBRA (CELECOXIB) [Suspect]
     Indication: HEPATIC NEOPLASM MALIGNANT
     Dosage: 800 MG (200  MG, 1 D), ORAL
     Route: 048
     Dates: start: 20030401, end: 20031001
  2. GEFITINIB (GEFITINIB) [Suspect]
     Indication: HEPATIC NEOPLASM MALIGNANT
     Dates: start: 20030401, end: 20031001

REACTIONS (4)
  - ACNE [None]
  - ALOPECIA [None]
  - EYELID INFECTION [None]
  - SKIN INJURY [None]
